FAERS Safety Report 8465281-6 (Version None)
Quarter: 2012Q2

REPORT INFORMATION
  Report Type: 
  Country: None (occurrence: None)
  Receive Date: 20120626
  Receipt Date: 20120618
  Transmission Date: 20120825
  Serious: Yes (Hospitalization, Disabling, Other)
  Sender: FDA-Public Use
  Company Number: JP-JNJFOC-20120208776

PATIENT
  Age: 67 Year
  Sex: Female

DRUGS (13)
  1. DORIPENEM MONOHYDRATE [Suspect]
     Indication: PRODUCT USED FOR UNKNOWN INDICATION
     Route: 041
  2. LANSOPRAZOLE [Concomitant]
     Route: 048
  3. SOLU-CORTEF [Concomitant]
     Route: 042
  4. MUCODYNE [Concomitant]
     Route: 048
  5. ITRACONAZOLE [Concomitant]
     Route: 048
  6. ACETAMINOPHEN [Concomitant]
     Route: 054
  7. PRIMPERAN TAB [Concomitant]
     Route: 065
  8. VANCOMYCIN [Suspect]
     Indication: ARTHRITIS
     Route: 041
     Dates: start: 20120123, end: 20120126
  9. FUNGUARD [Concomitant]
     Route: 041
  10. VANCOMYCIN [Suspect]
     Route: 041
     Dates: start: 20120126, end: 20120130
  11. RAPIACTA [Suspect]
     Indication: INFLUENZA
     Route: 041
     Dates: start: 20120127, end: 20120127
  12. CHLORPHENIRAMINE MALEATE [Concomitant]
     Route: 065
  13. VEEN-3G [Concomitant]
     Route: 041

REACTIONS (2)
  - DEAFNESS [None]
  - RENAL FAILURE ACUTE [None]
